FAERS Safety Report 21955824 (Version 1)
Quarter: 2023Q1

REPORT INFORMATION
  Report Type: Other
  Country: None (occurrence: SA)
  Receive Date: 20230206
  Receipt Date: 20230206
  Transmission Date: 20230418
  Serious: Yes (Death, Other)
  Sender: FDA-Public Use
  Company Number: SA-Spectra Medical Devices, LLC-2137539

PATIENT
  Age: 22 Year
  Sex: Female

DRUGS (1)
  1. LIDOCAINE HYDROCHLORIDE ANHYDROUS [Suspect]
     Active Substance: LIDOCAINE HYDROCHLORIDE ANHYDROUS
     Indication: Pain
     Route: 065

REACTIONS (3)
  - Cardio-respiratory arrest [Fatal]
  - Seizure [Fatal]
  - Toxicity to various agents [Fatal]
